FAERS Safety Report 21807952 (Version 2)
Quarter: 2024Q2

REPORT INFORMATION
  Report Type: Report from Study
  Country: US (occurrence: US)
  Receive Date: 20230103
  Receipt Date: 20240404
  Transmission Date: 20240716
  Serious: No
  Sender: FDA-Public Use
  Company Number: US-ABBVIE-4223588

PATIENT
  Sex: Male

DRUGS (1)
  1. HUMIRA [Suspect]
     Active Substance: ADALIMUMAB
     Indication: Crohn^s disease
     Dosage: CITRATE FREE
     Route: 058
     Dates: end: 20221119

REACTIONS (4)
  - Eye pruritus [Recovering/Resolving]
  - Peripheral swelling [Recovering/Resolving]
  - Lumbar hernia [Recovering/Resolving]
  - Dyspnoea [Recovering/Resolving]
